FAERS Safety Report 5125094-X (Version None)
Quarter: 2006Q4

REPORT INFORMATION
  Report Type: 
  Country: None (occurrence: None)
  Receive Date: 20061010
  Receipt Date: 20061010
  Transmission Date: 20070319
  Serious: Yes (Life-Threatening)
  Sender: FDA-Public Use
  Company Number: None

PATIENT
  Age: 77 Year
  Sex: Male

DRUGS (13)
  1. HUMULIN 70/30 [Suspect]
     Indication: DIABETES MELLITUS INSULIN-DEPENDENT
     Dosage: 10 UNITS BID
     Dates: start: 20060503
  2. METFORMIN [Suspect]
     Indication: DIABETES MELLITUS INSULIN-DEPENDENT
     Dosage: 500 MG BID
     Dates: start: 20030901
  3. ASPIRIN [Concomitant]
  4. ZOLOFT [Concomitant]
  5. METOPROLOL TARTRATE [Concomitant]
  6. POTASSIUM CHLORIDE [Concomitant]
  7. FUROSEMIDE [Concomitant]
  8. ZIPRASIDONE HCL [Concomitant]
  9. OSCAL [Concomitant]
  10. ROSIGLITAZONE [Concomitant]
  11. LISINOPRIL [Concomitant]
  12. MULTI-VITAMIN [Concomitant]
  13. TAMSULOSIN HCL [Concomitant]

REACTIONS (1)
  - FALL [None]
